FAERS Safety Report 11462823 (Version 1)
Quarter: 2015Q3

REPORT INFORMATION
  Report Type: Spontaneous
  Country: US (occurrence: US)
  Receive Date: 20150831
  Receipt Date: 20150831
  Transmission Date: 20151125
  Serious: No
  Sender: FDA-Public Use
  Company Number: US-ELI_LILLY_AND_COMPANY-US201101006792

PATIENT
  Age: 68 Year
  Sex: Female

DRUGS (1)
  1. CYMBALTA [Suspect]
     Active Substance: DULOXETINE HYDROCHLORIDE
     Indication: MIGRAINE
     Dosage: 30 MG, DAILY (1/D)

REACTIONS (8)
  - Nausea [Unknown]
  - Diarrhoea [Unknown]
  - Dizziness [Unknown]
  - Hypersomnia [Unknown]
  - Asthenia [Unknown]
  - Headache [Unknown]
  - Feeling abnormal [Unknown]
  - Off label use [Unknown]
